FAERS Safety Report 14152382 (Version 1)
Quarter: 2017Q4

REPORT INFORMATION
  Report Type: Spontaneous
  Country: CN (occurrence: CN)
  Receive Date: 20171102
  Receipt Date: 20171102
  Transmission Date: 20180321
  Serious: Yes (Hospitalization)
  Sender: FDA-Public Use
  Company Number: CN-VIIV HEALTHCARE LIMITED-CN2017GSK164775

PATIENT
  Age: 56 Year
  Sex: Male

DRUGS (2)
  1. LAMIVUDINE. [Suspect]
     Active Substance: LAMIVUDINE
     Indication: HIV INFECTION
     Dosage: UNK
     Route: 048
  2. ZIDOVUDINE. [Suspect]
     Active Substance: ZIDOVUDINE
     Indication: HIV INFECTION
     Dosage: UNK
     Route: 048

REACTIONS (10)
  - Chronic actinic dermatitis [Recovered/Resolved]
  - Hyperkeratosis [Recovered/Resolved]
  - Rash papular [Recovered/Resolved]
  - Erythema [Recovered/Resolved]
  - Skin lesion [Recovered/Resolved]
  - Rash macular [Recovered/Resolved]
  - Skin plaque [Unknown]
  - Acanthosis [Recovered/Resolved]
  - Oedema [Recovered/Resolved]
  - Parakeratosis [Recovered/Resolved]
